FAERS Safety Report 8810877 (Version 1)
Quarter: 2012Q4

REPORT INFORMATION
  Report Type: Spontaneous
  Country: US (occurrence: None)
  Receive Date: 20120924
  Receipt Date: 20120924
  Transmission Date: 20130627
  Serious: Yes (Other)
  Sender: FDA-Public Use
  Company Number: None

PATIENT
  Age: 60 Year
  Sex: Male
  Weight: 122.93 kg

DRUGS (2)
  1. JANUVIA [Suspect]
     Indication: TYPE II DIABETES MELLITUS
     Route: 048
     Dates: start: 20111018, end: 20120915
  2. VICTOZA [Suspect]
     Indication: TYPE II DIABETES MELLITUS
     Dates: start: 20120710, end: 20120915

REACTIONS (2)
  - Pancreatitis acute [None]
  - Drug interaction [None]
